FAERS Safety Report 21378178 (Version 4)
Quarter: 2023Q1

REPORT INFORMATION
  Report Type: Spontaneous
  Country: JP (occurrence: JP)
  Receive Date: 20220927
  Receipt Date: 20230203
  Transmission Date: 20230418
  Serious: Yes (Death, Other)
  Sender: FDA-Public Use
  Company Number: JP-NOVARTISPH-NVSJ2022JP098020

PATIENT
  Age: 74 Year
  Sex: Female

DRUGS (1)
  1. GLIVEC [Suspect]
     Active Substance: IMATINIB MESYLATE
     Indication: Chronic myeloid leukaemia transformation
     Dosage: 100 MG
     Route: 048

REACTIONS (2)
  - Necrosis ischaemic [Fatal]
  - Peripheral artery occlusion [Fatal]

NARRATIVE: CASE EVENT DATE: 20210801
